FAERS Safety Report 10085022 (Version 1)
Quarter: 2014Q2

REPORT INFORMATION
  Report Type: Spontaneous
  Country: SE (occurrence: None)
  Receive Date: 20140408
  Receipt Date: 20140408
  Transmission Date: 20141212
  Serious: Yes (Hospitalization, Other)
  Sender: FDA-Public Use
  Company Number: 2014-00421

PATIENT
  Age: 16 Year
  Sex: Male

DRUGS (5)
  1. TOPIRAMATE (UNKNOWN) (TOPIRAMATE) [Suspect]
     Indication: ABNORMAL BEHAVIOUR
  2. RISPERIDONE (UNKNOWN) (RISPERIDONE) [Suspect]
     Indication: BIPOLAR DISORDER
  3. ARIPIPRAZOLE (UNKNOWN) [Suspect]
     Indication: BIPOLAR DISORDER
  4. VENLAFAXINE [Suspect]
     Indication: BIPOLAR DISORDER
  5. ZONISAMIDE [Suspect]
     Indication: BIPOLAR DISORDER

REACTIONS (2)
  - Rhabdomyolysis [None]
  - Renal failure acute [None]
